FAERS Safety Report 7756742-3 (Version None)
Quarter: 2011Q3

REPORT INFORMATION
  Report Type: 
  Country: None (occurrence: None)
  Receive Date: 20110916
  Receipt Date: 20110316
  Transmission Date: 20111222
  Serious: Yes (Other)
  Sender: FDA-Public Use
  Company Number: CD-BAYER-2011-081591

PATIENT
  Age: 37 Year
  Sex: Female

DRUGS (4)
  1. BAYA2502/OTHER [Suspect]
     Indication: AFRICAN TRYPANOSOMIASIS
     Dosage: 15 MG/KG, QD
     Route: 048
     Dates: start: 20101217
  2. PROMETHAZINE [Concomitant]
     Indication: VOMITING
     Dosage: UNK
     Dates: start: 20101217
  3. ALUMINUM HYDROXIDE GEL [Concomitant]
     Indication: GASTRITIS
     Dosage: UNK
     Dates: start: 20101218
  4. ORNIDYL [Suspect]
     Indication: AFRICAN TRYPANOSOMIASIS
     Dosage: 400 MG/KG, QD
     Route: 042
     Dates: start: 20101217

REACTIONS (5)
  - HALLUCINATION [None]
  - NECK PAIN [None]
  - HEADACHE [None]
  - BACK PAIN [None]
  - ABDOMINAL PAIN UPPER [None]
